FAERS Safety Report 7419738-7 (Version None)
Quarter: 2011Q2

REPORT INFORMATION
  Report Type: 
  Country: None (occurrence: None)
  Receive Date: 20110412
  Receipt Date: 20110412
  Transmission Date: 20111010
  Serious: Yes (Death)
  Sender: FDA-Public Use
  Company Number: None

PATIENT
  Age: 73 Year
  Sex: Male
  Weight: 81.1939 kg

DRUGS (1)
  1. IRINOTECAN HYDROCHLORIDE [Suspect]
     Indication: COLON CANCER METASTATIC
     Dosage: 287 MG DAY ONE IV DRIP
     Route: 041
     Dates: start: 20110328, end: 20110328

REACTIONS (5)
  - PRODUCT QUALITY ISSUE [None]
  - FATIGUE [None]
  - DIZZINESS [None]
  - ABSCESS [None]
  - PURULENCE [None]
